FAERS Safety Report 4482455-X (Version None)
Quarter: 2004Q4

REPORT INFORMATION
  Report Type: 
  Country: None (occurrence: None)
  Receive Date: 20041022
  Receipt Date: 20031219
  Transmission Date: 20050328
  Serious: Yes (Hospitalization)
  Sender: FDA-Public Use
  Company Number: 356725

PATIENT
  Age: 31 Year
  Sex: Female
  Weight: 90.9 kg

DRUGS (18)
  1. COREG [Suspect]
     Route: 048
     Dates: start: 20021202
  2. UNKNOWN ANALGESIA [Suspect]
     Route: 042
     Dates: start: 20040101, end: 20040101
  3. NORVASC [Concomitant]
     Indication: HYPERTENSION
     Dosage: 10MG TWICE PER DAY
     Route: 048
     Dates: start: 20030403, end: 20040101
  4. HYDRALAZINE HCL [Concomitant]
     Indication: HYPERTENSION
     Dosage: 100MG FOUR TIMES PER DAY
     Route: 048
     Dates: start: 20021101, end: 20040101
  5. ALDOMET [Concomitant]
     Indication: HYPERTENSION
     Dosage: 500MG TWICE PER DAY
     Route: 048
     Dates: end: 20040101
  6. LASIX [Concomitant]
     Indication: CARDIAC FAILURE
     Dosage: 20MG TWICE PER DAY
     Route: 048
  7. NPH INSULIN [Concomitant]
     Route: 058
     Dates: start: 20030101
  8. REGULAR ILETIN II [Concomitant]
  9. PRENATAL VITAMINS [Concomitant]
  10. IRON [Concomitant]
  11. POTASSIUM [Concomitant]
  12. CYTOTEC [Concomitant]
     Dosage: 200MCG SIX TIMES PER DAY
     Dates: start: 20040126, end: 20040127
  13. MORPHINE [Concomitant]
     Route: 030
  14. PITOCIN [Concomitant]
     Dates: start: 20040127
  15. LISINOPRIL [Concomitant]
     Indication: HYPERTENSION
     Dates: start: 20040101
  16. GLUCOVANCE [Concomitant]
  17. MOTRIN [Concomitant]
     Indication: ABDOMINAL PAIN
     Dates: start: 20040101
  18. VICODIN [Concomitant]
     Indication: ABDOMINAL PAIN
     Dates: start: 20040101

REACTIONS (9)
  - CHEST DISCOMFORT [None]
  - DRUG EXPOSURE DURING PREGNANCY [None]
  - HYPERTENSION [None]
  - INDUCED LABOUR [None]
  - LABORATORY TEST ABNORMAL [None]
  - OEDEMA PERIPHERAL [None]
  - OLIGOHYDRAMNIOS [None]
  - RETAINED PLACENTA OR MEMBRANES [None]
  - UTERINE DILATION AND CURETTAGE [None]
